FAERS Safety Report 5112575-8 (Version None)
Quarter: 2006Q3

REPORT INFORMATION
  Report Type: 
  Country: None (occurrence: None)
  Receive Date: 20060919
  Receipt Date: 20060908
  Transmission Date: 20061208
  Serious: Yes (Other)
  Sender: FDA-Public Use
  Company Number: 2006109405

PATIENT
  Age: 80 Year
  Sex: Female

DRUGS (3)
  1. LIPITOR [Suspect]
     Indication: HYPERLIPIDAEMIA
     Dosage: ORAL
     Route: 048
     Dates: start: 19990101, end: 20060827
  2. COZAAR [Concomitant]
  3. SOLOSA (GLIMEPIRIDE) [Concomitant]

REACTIONS (2)
  - AGGRESSION [None]
  - HALLUCINATION [None]
